FAERS Safety Report 4284398-3 (Version None)
Quarter: 2004Q1

REPORT INFORMATION
  Report Type: 
  Country: None (occurrence: None)
  Receive Date: 20040203
  Receipt Date: 20040129
  Transmission Date: 20041129
  Serious: Yes (Death)
  Sender: FDA-Public Use
  Company Number: PHNR2004AU00518

PATIENT
  Sex: Male

DRUGS (2)
  1. VOLTAREN [Suspect]
     Dosage: UNSPECIFIED
  2. FELDENE [Suspect]
     Dosage: 1 TIME (DOSE UNSPECIFIED)

REACTIONS (1)
  - GASTROINTESTINAL HAEMORRHAGE [None]
